FAERS Safety Report 8495469-X (Version None)
Quarter: 2012Q3

REPORT INFORMATION
  Report Type: 
  Country: None (occurrence: None)
  Receive Date: 20120709
  Receipt Date: 20120628
  Transmission Date: 20120928
  Serious: Yes (Other)
  Sender: FDA-Public Use
  Company Number: US-ASTRAZENECA-2012SE27659

PATIENT
  Age: 85 Year
  Sex: Female

DRUGS (1)
  1. NEXIUM [Suspect]
     Route: 048

REACTIONS (8)
  - LIMB DISCOMFORT [None]
  - OEDEMA PERIPHERAL [None]
  - LOWER LIMB FRACTURE [None]
  - JOINT INJURY [None]
  - CYST [None]
  - OSTEOPOROSIS [None]
  - ARTHRITIS [None]
  - LIMB INJURY [None]
